FAERS Safety Report 7231112-5 (Version None)
Quarter: 2011Q1

REPORT INFORMATION
  Report Type: 
  Country: None (occurrence: None)
  Receive Date: 20110118
  Receipt Date: 20110110
  Transmission Date: 20110831
  Serious: Yes (Other)
  Sender: FDA-Public Use
  Company Number: US-TEVA-263006USA

PATIENT
  Age: 69 Year
  Sex: Female

DRUGS (3)
  1. ETANERCEPT [Suspect]
     Indication: RHEUMATOID ARTHRITIS
     Dates: start: 20090101, end: 20100401
  2. METHOTREXATE SODIUM [Suspect]
  3. METHOTREXATE SOLUTION FOR INJECTION, 25 MG/ML [Suspect]

REACTIONS (3)
  - RASH [None]
  - COUGH [None]
  - ANOSMIA [None]
